FAERS Safety Report 24393471 (Version 13)
Quarter: 2025Q1

REPORT INFORMATION
  Report Type: Spontaneous
  Country: US (occurrence: US)
  Receive Date: 20241003
  Receipt Date: 20250327
  Transmission Date: 20250409
  Serious: No
  Sender: PFIZER
  Company Number: US-PFIZER INC-202400267388

PATIENT
  Age: 29 Year
  Sex: Male

DRUGS (14)
  1. ADCETRIS [Suspect]
     Active Substance: BRENTUXIMAB VEDOTIN
     Indication: Hodgkin^s disease
     Dosage: 146 MG, EVERY 3 WEEKS
     Dates: start: 20221101
  2. ADCETRIS [Suspect]
     Active Substance: BRENTUXIMAB VEDOTIN
     Dosage: 149 MG, EVERY 3 WEEKS
     Route: 042
     Dates: start: 202404
  3. ADCETRIS [Suspect]
     Active Substance: BRENTUXIMAB VEDOTIN
     Dosage: 140.1 MG, EVERY 3 WEEKS
     Dates: start: 20240917
  4. ADCETRIS [Suspect]
     Active Substance: BRENTUXIMAB VEDOTIN
     Dosage: 145 MG, EVERY 3 WEEKS
     Route: 042
     Dates: start: 20240930
  5. ADCETRIS [Suspect]
     Active Substance: BRENTUXIMAB VEDOTIN
     Dosage: 147 MG, EVERY 3 WEEKS
     Route: 042
     Dates: start: 20241022
  6. ADCETRIS [Suspect]
     Active Substance: BRENTUXIMAB VEDOTIN
     Dosage: 142.1 MG, EVERY 3 WEEKS
     Route: 042
  7. ADCETRIS [Suspect]
     Active Substance: BRENTUXIMAB VEDOTIN
     Dosage: 145.8 MG, EVERY 3 WEEKS
  8. ADCETRIS [Suspect]
     Active Substance: BRENTUXIMAB VEDOTIN
     Dosage: 144.6 MG, EVERY 3 WEEKS
     Route: 042
  9. ADCETRIS [Suspect]
     Active Substance: BRENTUXIMAB VEDOTIN
     Dosage: 140.4 MG, EVERY 3 WEEKS
  10. ADCETRIS [Suspect]
     Active Substance: BRENTUXIMAB VEDOTIN
     Dosage: 135.9 MG, EVERY 3 WEEKS
  11. ADCETRIS [Suspect]
     Active Substance: BRENTUXIMAB VEDOTIN
     Dosage: 131.5 MG INFUSION EVERY 3 WEEKS
  12. DACARBAZINE [Concomitant]
     Active Substance: DACARBAZINE
  13. DOXORUBICIN [Concomitant]
     Active Substance: DOXORUBICIN
  14. VINBLASTINE [Concomitant]
     Active Substance: VINBLASTINE

REACTIONS (2)
  - Weight fluctuation [Not Recovered/Not Resolved]
  - Off label use [Unknown]

NARRATIVE: CASE EVENT DATE: 20221101
